FAERS Safety Report 10082516 (Version 1)
Quarter: 2014Q2

REPORT INFORMATION
  Report Type: Spontaneous
  Country: US (occurrence: US)
  Receive Date: 20140416
  Receipt Date: 20140416
  Transmission Date: 20141212
  Serious: No
  Sender: FDA-Public Use
  Company Number: US-BIOGENIDEC-2014BI032748

PATIENT
  Age: 37 Year
  Sex: Female

DRUGS (1)
  1. AVONEX [Suspect]
     Indication: MULTIPLE SCLEROSIS
     Route: 030
     Dates: start: 20140403

REACTIONS (3)
  - Accidental overdose [Recovered/Resolved]
  - Influenza like illness [Not Recovered/Not Resolved]
  - Injection site erythema [Not Recovered/Not Resolved]
